FAERS Safety Report 5819849-3 (Version None)
Quarter: 2008Q3

REPORT INFORMATION
  Report Type: 
  Country: None (occurrence: None)
  Receive Date: 20080723
  Receipt Date: 20080714
  Transmission Date: 20090109
  Serious: Yes (Hospitalization)
  Sender: FDA-Public Use
  Company Number: US-ABBOTT-08P-163-0462524-00

PATIENT
  Sex: Female
  Weight: 55.842 kg

DRUGS (8)
  1. HUMIRA [Suspect]
     Indication: RHEUMATOID ARTHRITIS
     Route: 050
     Dates: start: 20080201
  2. HYDROCODONE BITARTRATE [Concomitant]
     Indication: RHEUMATOID ARTHRITIS
     Dosage: Q 4
     Route: 048
     Dates: start: 20040101
  3. CARISOPRODOL [Concomitant]
     Indication: RHEUMATOID ARTHRITIS
     Route: 048
     Dates: start: 20040101
  4. MORPHINE [Concomitant]
     Indication: RHEUMATOID ARTHRITIS
     Dosage: 30MG; 2 TABS TID
     Route: 048
     Dates: start: 20040101
  5. PHENERGAN HCL [Concomitant]
     Indication: RHEUMATOID ARTHRITIS
     Route: 048
     Dates: start: 20040101
  6. QUETIAPINE FUMARATE [Concomitant]
     Indication: INSOMNIA
     Dosage: EVERY NIGHT
     Route: 048
     Dates: start: 20040101
  7. VALPROATE SODIUM [Concomitant]
     Indication: BIPOLAR DISORDER
     Dosage: 2 TABS EVERY NIGHT
     Route: 048
     Dates: start: 20080301
  8. TRAZODONE HCL [Concomitant]
     Indication: INSOMNIA
     Dosage: EVERY NIGHT
     Route: 048
     Dates: start: 20070101

REACTIONS (3)
  - DISEASE PROGRESSION [None]
  - PROCEDURAL COMPLICATION [None]
  - RHEUMATOID ARTHRITIS [None]
